FAERS Safety Report 17711661 (Version 1)
Quarter: 2020Q2

REPORT INFORMATION
  Report Type: Spontaneous
  Country: JP (occurrence: JP)
  Receive Date: 20200427
  Receipt Date: 20200427
  Transmission Date: 20200714
  Serious: Yes (Death)
  Sender: FDA-Public Use
  Company Number: JP-PFIZER INC-2020120003

PATIENT
  Age: 81 Year
  Sex: Female

DRUGS (7)
  1. OLMESARTAN [Concomitant]
     Active Substance: OLMESARTAN
     Dosage: 10 MG, 1X/DAY
     Route: 048
     Dates: end: 20200312
  2. ENDOXAN [CYCLOPHOSPHAMIDE MONOHYDRATE] [Concomitant]
     Active Substance: CYCLOPHOSPHAMIDE
     Indication: INTERSTITIAL LUNG DISEASE
     Dosage: 600 MG, 1X/DAY
     Route: 041
     Dates: start: 20200318, end: 20200318
  3. VFEND [Suspect]
     Active Substance: VORICONAZOLE
     Indication: BLOOD BETA-D-GLUCAN INCREASED
     Dosage: 150 MG, 2X/DAY
     Route: 042
     Dates: start: 20200313, end: 202004
  4. CEFTRIAXON [Concomitant]
     Active Substance: CEFTRIAXONE
     Indication: PNEUMONIA
     Dosage: 1 G, 2X/DAY
     Route: 041
     Dates: start: 20200309, end: 20200311
  5. METHOTREXATE. [Concomitant]
     Active Substance: METHOTREXATE
     Indication: RHEUMATOID ARTHRITIS
     Dosage: 7 TABLETS WEEKLY IN 3 DIVIDED DOSES
     Route: 048
  6. TAZOPIPE [Concomitant]
     Active Substance: PIPERACILLIN SODIUM\TAZOBACTAM SODIUM
     Indication: PNEUMONIA
     Dosage: 4.5 G, 3X/DAY
     Route: 041
     Dates: start: 20200311, end: 20200313
  7. LASIX [Concomitant]
     Active Substance: FUROSEMIDE
     Dosage: 20 MG, 1X/DAY
     Route: 041
     Dates: start: 20200319, end: 20200416

REACTIONS (5)
  - Death [Fatal]
  - Aspartate aminotransferase increased [Recovering/Resolving]
  - Blood lactate dehydrogenase increased [Unknown]
  - Alanine aminotransferase increased [Unknown]
  - Blood potassium increased [Recovering/Resolving]

NARRATIVE: CASE EVENT DATE: 20200320
